FAERS Safety Report 6577660-2 (Version None)
Quarter: 2010Q1

REPORT INFORMATION
  Report Type: 
  Country: None (occurrence: None)
  Receive Date: 20100211
  Receipt Date: 20100203
  Transmission Date: 20100710
  Serious: Yes (Hospitalization)
  Sender: FDA-Public Use
  Company Number: PHHY2009BE43304

PATIENT
  Age: 77 Year
  Sex: Male

DRUGS (5)
  1. RASILEZ [Suspect]
     Indication: HYPERTENSION
     Dosage: 150 MG, DAILY
     Route: 048
     Dates: start: 20090901, end: 20090908
  2. LOORTAN [Concomitant]
  3. LASIX [Concomitant]
  4. ESTULIC [Concomitant]
  5. VASEXTEN [Concomitant]

REACTIONS (6)
  - ABDOMINAL PAIN [None]
  - BLOOD CREATININE INCREASED [None]
  - ECHOGRAPHY ABNORMAL [None]
  - LIPASE INCREASED [None]
  - PANCREATIC CALCIFICATION [None]
  - RENAL FAILURE [None]
